FAERS Safety Report 21493491 (Version 6)
Quarter: 2023Q2

REPORT INFORMATION
  Report Type: Spontaneous
  Country: JP (occurrence: JP)
  Receive Date: 20221021
  Receipt Date: 20230526
  Transmission Date: 20230721
  Serious: Yes (Other)
  Sender: FDA-Public Use
  Company Number: JP-ONO-2022JP028290

PATIENT
  Age: 74 Year
  Sex: Male

DRUGS (4)
  1. OPDIVO [Suspect]
     Active Substance: NIVOLUMAB
     Indication: Malignant melanoma
     Route: 041
  2. INSULIN NOS [Concomitant]
     Active Substance: INSULIN NOS
     Indication: Diabetes mellitus
  3. PREDNISOLONE [Concomitant]
     Active Substance: PREDNISOLONE
     Indication: Autoimmune pancreatitis
  4. PREDNISOLONE [Concomitant]
     Active Substance: PREDNISOLONE

REACTIONS (1)
  - Immune-mediated uveitis [Recovered/Resolved]
